FAERS Safety Report 12675762 (Version 1)
Quarter: 2016Q3

REPORT INFORMATION
  Report Type: Spontaneous
  Country: US (occurrence: US)
  Receive Date: 20160823
  Receipt Date: 20160823
  Transmission Date: 20161109
  Serious: No
  Sender: FDA-Public Use
  Company Number: US-JAZZ-2016-US-006645

PATIENT
  Sex: Female

DRUGS (23)
  1. CLINDAMYCIN [Suspect]
     Active Substance: CLINDAMYCIN\CLINDAMYCIN PHOSPHATE
     Indication: PRODUCT USED FOR UNKNOWN INDICATION
  2. ELESTRIN [Concomitant]
     Active Substance: ESTRADIOL
  3. PROBIOTIC [Concomitant]
     Active Substance: PROBIOTICS NOS
  4. XYREM [Suspect]
     Active Substance: SODIUM OXYBATE
     Indication: NARCOLEPSY
     Dosage: 3 G, BID
     Route: 048
     Dates: start: 201512, end: 201601
  5. MALARONE [Concomitant]
     Active Substance: ATOVAQUONE\PROGUANIL HYDROCHLORIDE
  6. LEXAPRO [Concomitant]
     Active Substance: ESCITALOPRAM OXALATE
  7. ROCEPHIN [Concomitant]
     Active Substance: CEFTRIAXONE SODIUM
  8. MERREM [Suspect]
     Active Substance: MEROPENEM
     Indication: PRODUCT USED FOR UNKNOWN INDICATION
  9. RANITIDINE. [Concomitant]
     Active Substance: RANITIDINE
  10. VITAMIN D3 [Concomitant]
     Active Substance: CHOLECALCIFEROL
  11. BACLOFEN. [Concomitant]
     Active Substance: BACLOFEN
  12. NEURONTIN [Concomitant]
     Active Substance: GABAPENTIN
  13. ZOFRAN [Concomitant]
     Active Substance: ONDANSETRON HYDROCHLORIDE
  14. NAPROXEN. [Concomitant]
     Active Substance: NAPROXEN
  15. ANTIBIOTIC [Concomitant]
     Active Substance: UNSPECIFIED INGREDIENT
  16. MILK THISTLE [Concomitant]
     Active Substance: MILK THISTLE
  17. OMEGA 3 FISH OIL [Concomitant]
     Active Substance: FISH OIL\OMEGA-3 FATTY ACIDS
  18. URSODIOL. [Concomitant]
     Active Substance: URSODIOL
  19. XYREM [Suspect]
     Active Substance: SODIUM OXYBATE
     Indication: CATAPLEXY
     Dosage: 4.5 G, BID
     Route: 048
     Dates: start: 201601
  20. NUVIGIL [Concomitant]
     Active Substance: ARMODAFINIL
  21. ATIVAN [Concomitant]
     Active Substance: LORAZEPAM
  22. NAMENDA [Concomitant]
     Active Substance: MEMANTINE HYDROCHLORIDE
  23. NYSTATIN. [Concomitant]
     Active Substance: NYSTATIN

REACTIONS (2)
  - Cat scratch disease [Not Recovered/Not Resolved]
  - Malaise [Not Recovered/Not Resolved]
